FAERS Safety Report 19163948 (Version 1)
Quarter: 2021Q2

REPORT INFORMATION
  Report Type: Spontaneous
  Country: GB (occurrence: GB)
  Receive Date: 20210421
  Receipt Date: 20210421
  Transmission Date: 20210717
  Serious: Yes (Hospitalization, Other)
  Sender: FDA-Public Use
  Company Number: GB-FERRINGPH-2021FE01943

PATIENT
  Age: 74 Year
  Sex: Female

DRUGS (1)
  1. ZOMACTON [Suspect]
     Active Substance: SOMATROPIN
     Indication: PRODUCT USED FOR UNKNOWN INDICATION
     Dosage: UNKNOWN
     Route: 065

REACTIONS (5)
  - Product use issue [Unknown]
  - Recalled product administered [Unknown]
  - Femoral neck fracture [Unknown]
  - Fall [Unknown]
  - Intercepted product storage error [Unknown]
